FAERS Safety Report 9650701 (Version 2)
Quarter: 2013Q4

REPORT INFORMATION
  Report Type: Spontaneous
  Country: US (occurrence: US)
  Receive Date: 20131029
  Receipt Date: 20131029
  Transmission Date: 20140711
  Serious: Yes (Other)
  Sender: FDA-Public Use
  Company Number: US-ROCHE-1285969

PATIENT
  Sex: Female

DRUGS (5)
  1. PEGASYS [Suspect]
     Indication: HEPATITIS C
     Dosage: 0.5 ML
     Route: 058
     Dates: start: 20130719, end: 20130906
  2. PEGASYS [Suspect]
     Route: 058
     Dates: end: 20130916
  3. RIBAVIRIN [Suspect]
     Indication: HEPATITIS C
     Route: 048
     Dates: start: 20130719, end: 20130906
  4. RIBAVIRIN [Suspect]
     Route: 048
     Dates: end: 20130916
  5. INCIVEK [Concomitant]
     Indication: HEPATITIS C
     Route: 048
     Dates: start: 20130719, end: 20130916

REACTIONS (13)
  - Malaise [Recovered/Resolved]
  - Nausea [Recovered/Resolved]
  - Headache [Recovered/Resolved]
  - Fatigue [Recovered/Resolved]
  - Haemoglobin decreased [Recovered/Resolved]
  - Red blood cell count decreased [Recovered/Resolved]
  - White blood cell count decreased [Recovered/Resolved]
  - Arteriosclerosis coronary artery [Not Recovered/Not Resolved]
  - Pancytopenia [Recovered/Resolved]
  - Rash [Recovered/Resolved]
  - Genital rash [Recovered/Resolved]
  - Pyrexia [Recovered/Resolved]
  - Chills [Recovered/Resolved]
